FAERS Safety Report 14293700 (Version 1)
Quarter: 2017Q4

REPORT INFORMATION
  Report Type: Spontaneous
  Country: US (occurrence: US)
  Receive Date: 20171216
  Receipt Date: 20171216
  Transmission Date: 20180321
  Serious: No
  Sender: FDA-Public Use
  Company Number: US-GLENMARK PHARMACEUTICALS-2017GMK028191

PATIENT

DRUGS (1)
  1. CICLOPIROX OLAMINE CREAM [Suspect]
     Active Substance: CICLOPIROX OLAMINE
     Indication: TINEA PEDIS
     Dosage: UNK, BID
     Route: 061
     Dates: start: 20170328, end: 20170628

REACTIONS (3)
  - Application site vesicles [Not Recovered/Not Resolved]
  - Herpes zoster [Not Recovered/Not Resolved]
  - Incorrect drug administration duration [Unknown]

NARRATIVE: CASE EVENT DATE: 20170628
